FAERS Safety Report 7360995-3 (Version None)
Quarter: 2011Q1

REPORT INFORMATION
  Report Type: 
  Country: None (occurrence: None)
  Receive Date: 20110318
  Receipt Date: 20110316
  Transmission Date: 20110831
  Serious: Yes (Hospitalization, Other)
  Sender: FDA-Public Use
  Company Number: US-ROCHE-479447

PATIENT
  Sex: Male
  Weight: 62.1 kg

DRUGS (5)
  1. ACCUTANE [Suspect]
     Indication: ACNE
     Route: 048
     Dates: start: 19840130, end: 19840715
  2. HYTONE [Concomitant]
     Route: 061
     Dates: start: 19840516
  3. ACCUTANE [Suspect]
     Route: 048
     Dates: start: 19910912, end: 19911024
  4. BLISTEX [Concomitant]
     Route: 061
     Dates: start: 19840516
  5. ACCUTANE [Suspect]
     Route: 048
     Dates: start: 19841025, end: 19850201

REACTIONS (22)
  - INTESTINAL OBSTRUCTION [None]
  - COLITIS ULCERATIVE [None]
  - ATTENTION DEFICIT/HYPERACTIVITY DISORDER [None]
  - BIPOLAR II DISORDER [None]
  - LYMPHOID TISSUE HYPERPLASIA [None]
  - PSEUDOPOLYP [None]
  - COLITIS [None]
  - GASTRITIS [None]
  - DEPRESSION [None]
  - CROHN'S DISEASE [None]
  - OESOPHAGITIS [None]
  - PSYCHOTIC BEHAVIOUR [None]
  - MEGACOLON [None]
  - PROCTITIS [None]
  - LIP DRY [None]
  - INFLAMMATORY BOWEL DISEASE [None]
  - IRRITABLE BOWEL SYNDROME [None]
  - CONSTIPATION [None]
  - DRUG DEPENDENCE [None]
  - HAEMORRHOIDS [None]
  - APPENDICITIS [None]
  - ABDOMINAL PAIN [None]
